FAERS Safety Report 10920557 (Version 1)
Quarter: 2015Q1

REPORT INFORMATION
  Report Type: Spontaneous
  Country: US (occurrence: None)
  Receive Date: 20150313
  Receipt Date: 20150313
  Transmission Date: 20150721
  Serious: No
  Sender: FDA-Public Use
  Company Number: None

PATIENT
  Age: 2 Year
  Sex: Female
  Weight: 9.98 kg

DRUGS (1)
  1. TAMIFLU [Suspect]
     Active Substance: OSELTAMIVIR PHOSPHATE
     Indication: INFLUENZA
     Route: 048
     Dates: start: 20150309, end: 20150311

REACTIONS (7)
  - Speech disorder [None]
  - Abnormal behaviour [None]
  - Insomnia [None]
  - Screaming [None]
  - Diarrhoea [None]
  - Anger [None]
  - Irritability [None]

NARRATIVE: CASE EVENT DATE: 20150311
